FAERS Safety Report 5861214-7 (Version None)
Quarter: 2008Q3

REPORT INFORMATION
  Report Type: 
  Country: None (occurrence: None)
  Receive Date: 20080827
  Receipt Date: 20080325
  Transmission Date: 20090109
  Serious: No
  Sender: FDA-Public Use
  Company Number: US-ABBOTT-08P-163-0443793-00

PATIENT
  Sex: Male
  Weight: 93.07 kg

DRUGS (1)
  1. COATED PDS [Suspect]
     Indication: BLOOD CHOLESTEROL INCREASED
     Route: 048
     Dates: start: 20080315, end: 20080321

REACTIONS (5)
  - FLUSHING [None]
  - MUSCLE ATROPHY [None]
  - SKIN DISCOLOURATION [None]
  - SKIN DISORDER [None]
  - SWELLING FACE [None]
